FAERS Safety Report 5724990-X (Version None)
Quarter: 2008Q2

REPORT INFORMATION
  Report Type: 
  Country: None (occurrence: None)
  Receive Date: 20080430
  Receipt Date: 20080430
  Transmission Date: 20081010
  Serious: Yes (Hospitalization)
  Sender: FDA-Public Use
  Company Number: None

PATIENT
  Age: 4 Year
  Sex: Male
  Weight: 20 kg

DRUGS (1)
  1. PEG-ASPARAGINASE [Suspect]
     Indication: ACUTE LYMPHOCYTIC LEUKAEMIA
     Dosage: 1975 UNITS ONCE
     Dates: start: 20080331, end: 20080331

REACTIONS (6)
  - OXYGEN SATURATION DECREASED [None]
  - PARAESTHESIA [None]
  - PRURITUS [None]
  - RESPIRATORY DISTRESS [None]
  - SWELLING FACE [None]
  - URTICARIA [None]
